FAERS Safety Report 4549069-4 (Version None)
Quarter: 2005Q1

REPORT INFORMATION
  Report Type: 
  Country: None (occurrence: None)
  Receive Date: 20041227
  Receipt Date: 20040907
  Transmission Date: 20050727
  Serious: No
  Sender: FDA-Public Use
  Company Number: 04P-163-0262056-00

PATIENT
  Age: 59 Year
  Sex: Female
  Weight: 51.7101 kg

DRUGS (6)
  1. HUMIRA [Suspect]
     Indication: RHEUMATOID ARTHRITIS
     Dosage: 40 MG,  1 IN 2 WK, SUBCUTANEOUS
     Route: 058
     Dates: start: 20030430
  2. VICODIN [Concomitant]
  3. ASPIRIN TAB [Concomitant]
  4. DOCUSATE SODIUM [Concomitant]
  5. ALPRAZOLAM [Concomitant]
  6. TRIAZOLAM [Concomitant]

REACTIONS (5)
  - DYSPHONIA [None]
  - FATIGUE [None]
  - NASAL DISCOMFORT [None]
  - SINUS HEADACHE [None]
  - VOCAL CORD THICKENING [None]
